FAERS Safety Report 8139999-9 (Version None)
Quarter: 2012Q1

REPORT INFORMATION
  Report Type: 
  Country: None (occurrence: None)
  Receive Date: 20120215
  Receipt Date: 20120208
  Transmission Date: 20120608
  Serious: Yes (Other)
  Sender: FDA-Public Use
  Company Number: BR-MERCK-1202BRA00036

PATIENT
  Sex: Male
  Weight: 95 kg

DRUGS (4)
  1. VALSARTAN [Concomitant]
     Indication: HYPERTENSION
     Route: 048
     Dates: start: 20110101
  2. CLOPIDOGREL BISULFATE [Concomitant]
     Indication: HYPERTENSION
     Route: 048
     Dates: start: 20110101
  3. JANUMET [Suspect]
     Indication: DIABETES MELLITUS
     Route: 048
     Dates: start: 20120206
  4. VYTORIN [Suspect]
     Indication: BLOOD CHOLESTEROL
     Route: 048
     Dates: start: 20100101

REACTIONS (3)
  - MUSCLE SPASMS [None]
  - CARDIAC DISORDER [None]
  - NAUSEA [None]
